FAERS Safety Report 10038565 (Version 1)
Quarter: 2014Q1

REPORT INFORMATION
  Report Type: Spontaneous
  Country: US (occurrence: None)
  Receive Date: 20140306
  Receipt Date: 20140306
  Transmission Date: 20141002
  Serious: Yes (Other)
  Sender: FDA-Public Use
  Company Number: 163-21880-13072961

PATIENT
  Age: 66 Year
  Sex: Male
  Weight: 102.1 kg

DRUGS (9)
  1. REVLIMID(LENALIDOMIDE)(CAPSULES) [Suspect]
     Indication: PLASMA CELL MYELOMA
     Dosage: 10 MG, 21 IN 28 D, PO
     Route: 048
     Dates: start: 201006
  2. LOSARTAN(LOSARTAN) [Concomitant]
  3. POTASSIUM(POTASSIUM)(TABLETS) [Concomitant]
  4. LYRICA(PREGABALIN)(CAPSULES) [Concomitant]
  5. ACYCLOVIR(ACICLOVIR)(TABLETS) [Concomitant]
  6. LEVOTHYROXINE(LEVOTHYROXINE)(TABLETS) [Concomitant]
  7. AMITRIPTYLINE HCL (AMITRIPTYLINE HYDROCHLORIDE)(TABLETS) [Concomitant]
  8. FOLIC ACID (FOLIC ACID) (TABLETS) [Concomitant]
  9. CITRACAL + VITAMIN D (CAPSULES) [Concomitant]

REACTIONS (3)
  - Thrombosis [None]
  - Rash [None]
  - Neuropathy peripheral [None]
